FAERS Safety Report 8344454-7 (Version None)
Quarter: 2012Q2

REPORT INFORMATION
  Report Type: 
  Country: None (occurrence: None)
  Receive Date: 20120508
  Receipt Date: 20120425
  Transmission Date: 20120825
  Serious: Yes (Hospitalization)
  Sender: FDA-Public Use
  Company Number: CA-ROCHE-1063413

PATIENT
  Sex: Male
  Weight: 81.72 kg

DRUGS (18)
  1. CALCIUM D 500 [Concomitant]
  2. METOPROLOL TARTRATE [Concomitant]
  3. PERINDOPRIL ERBUMINE [Concomitant]
  4. MIRAPEX [Concomitant]
  5. ACTEMRA [Suspect]
     Indication: RHEUMATOID ARTHRITIS
     Route: 042
     Dates: start: 20111104
  6. NITROGLYCERIN [Concomitant]
  7. AMIODARONE HCL [Concomitant]
  8. PLAQUENIL [Concomitant]
  9. METHOTREXATE [Concomitant]
  10. TESTOSTERONE [Concomitant]
  11. PAXIL [Concomitant]
  12. PANTOPRAZOLE SODIUM [Concomitant]
  13. LIPITOR [Concomitant]
  14. PREDNISONE TAB [Concomitant]
  15. RISENDROS [Concomitant]
  16. WELLBUTRIN [Concomitant]
  17. FOLIC ACID [Concomitant]
  18. ASPIRIN [Concomitant]

REACTIONS (1)
  - PLEURAL EFFUSION [None]
